FAERS Safety Report 25069636 (Version 1)
Quarter: 2025Q1

REPORT INFORMATION
  Report Type: Spontaneous
  Country: US (occurrence: None)
  Receive Date: 20250312
  Receipt Date: 20250312
  Transmission Date: 20250408
  Serious: Yes (Hospitalization)
  Sender: FDA-CTU
  Company Number: None

PATIENT
  Age: 55 Year
  Sex: Female

DRUGS (5)
  1. CYCLOSPORINE [Suspect]
     Active Substance: CYCLOSPORINE
     Indication: Renal transplant
     Dosage: FREQUENCY : TWICE A DAY;?
     Route: 048
     Dates: start: 20240402
  2. CYCLOSPORINE [Suspect]
     Active Substance: CYCLOSPORINE
     Indication: Renal transplant
     Dosage: FREQUENCY : DAILY;?
     Route: 048
     Dates: start: 20240411
  3. PREDNISONE [Concomitant]
     Active Substance: PREDNISONE
     Dates: start: 20240120
  4. ASPIRIN [Concomitant]
     Active Substance: ASPIRIN
     Dates: start: 20240814
  5. Labetolol 200mg [Concomitant]
     Dates: start: 20240517

REACTIONS (1)
  - Urinary tract infection [None]
